FAERS Safety Report 4721746-1 (Version None)
Quarter: 2005Q3

REPORT INFORMATION
  Report Type: 
  Country: None (occurrence: None)
  Receive Date: 20050721
  Receipt Date: 20050325
  Transmission Date: 20060218
  Serious: No
  Sender: FDA-Public Use
  Company Number: US-BRISTOL-MYERS SQUIBB COMPANY-12912010

PATIENT
  Age: 87 Year
  Sex: Female
  Weight: 54 kg

DRUGS (1)
  1. COUMADIN [Suspect]
     Indication: CEREBROVASCULAR ACCIDENT PROPHYLAXIS
     Route: 048
     Dates: start: 20050201

REACTIONS (4)
  - INTERNATIONAL NORMALISED RATIO INCREASED [None]
  - LETHARGY [None]
  - PROTHROMBIN TIME PROLONGED [None]
  - PYREXIA [None]
